FAERS Safety Report 6087974-0 (Version None)
Quarter: 2009Q1

REPORT INFORMATION
  Report Type: 
  Country: None (occurrence: None)
  Receive Date: 20090219
  Receipt Date: 20090210
  Transmission Date: 20090719
  Serious: Yes (Death)
  Sender: FDA-Public Use
  Company Number: 2009AL000845

PATIENT
  Age: 36 Year
  Sex: Male

DRUGS (1)
  1. DIGOXIN [Suspect]
     Indication: CARDIAC DISORDER
     Dosage: PO
     Route: 048

REACTIONS (7)
  - ANXIETY [None]
  - CARDIOACTIVE DRUG LEVEL INCREASED [None]
  - ECONOMIC PROBLEM [None]
  - HEART RATE ABNORMAL [None]
  - MALAISE [None]
  - PAIN [None]
  - POST PROCEDURAL COMPLICATION [None]
